FAERS Safety Report 9745052 (Version 1)
Quarter: 2013Q4

REPORT INFORMATION
  Report Type: Spontaneous
  Country: GB (occurrence: GB)
  Receive Date: 20131211
  Receipt Date: 20131211
  Transmission Date: 20140711
  Serious: Yes (Other)
  Sender: FDA-Public Use
  Company Number: GB-ROCHE-1311953

PATIENT
  Age: 13 Year
  Sex: Female
  Weight: 56 kg

DRUGS (2)
  1. RIBAVIRIN [Suspect]
     Indication: HEPATITIS C
     Route: 048
     Dates: start: 20131011
  2. VIRAFERONPEG [Suspect]
     Indication: HEPATITIS C
     Dosage: DOSE: 100 MCG/0.5 ML
     Route: 058
     Dates: start: 20131011

REACTIONS (8)
  - Decreased appetite [Unknown]
  - Discomfort [Unknown]
  - Headache [Unknown]
  - Lethargy [Unknown]
  - Pyrexia [Unknown]
  - Drug dose omission [Unknown]
  - Incorrect dose administered [Unknown]
  - Product quality issue [Unknown]
